FAERS Safety Report 19218318 (Version 2)
Quarter: 2022Q1

REPORT INFORMATION
  Report Type: Spontaneous
  Country: US (occurrence: US)
  Receive Date: 20210505
  Receipt Date: 20220207
  Transmission Date: 20220423
  Serious: No
  Sender: FDA-Public Use
  Company Number: US-DSJP-DSU-2021-113459

PATIENT
  Age: 67 Year
  Sex: Female

DRUGS (2)
  1. ENHERTU [Suspect]
     Active Substance: FAM-TRASTUZUMAB DERUXTECAN-NXKI
     Indication: Breast cancer metastatic
     Dosage: UNK
     Route: 042
     Dates: start: 202103
  2. ENHERTU [Suspect]
     Active Substance: FAM-TRASTUZUMAB DERUXTECAN-NXKI
     Indication: HER2 positive breast cancer
     Dosage: UNK, ONCE EVERY 3 WK
     Route: 042
     Dates: start: 20210428

REACTIONS (7)
  - Headache [Recovered/Resolved]
  - Nausea [Recovering/Resolving]
  - Decreased appetite [Recovering/Resolving]
  - Vomiting [Unknown]
  - Constipation [Unknown]
  - Illness [Unknown]
  - Toxicity to various agents [Unknown]

NARRATIVE: CASE EVENT DATE: 20210401
